FAERS Safety Report 4721877-6 (Version None)
Quarter: 2005Q3

REPORT INFORMATION
  Report Type: 
  Country: None (occurrence: None)
  Receive Date: 20050721
  Receipt Date: 20050523
  Transmission Date: 20060218
  Serious: No
  Sender: FDA-Public Use
  Company Number: US-BRISTOL-MYERS SQUIBB COMPANY-12979514

PATIENT
  Age: 31 Year
  Sex: Female
  Weight: 91 kg

DRUGS (1)
  1. COUMADIN [Suspect]
     Indication: DEEP VEIN THROMBOSIS
     Dates: start: 20050501

REACTIONS (2)
  - HEADACHE [None]
  - OEDEMA PERIPHERAL [None]
